FAERS Safety Report 7355771-1 (Version None)
Quarter: 2011Q1

REPORT INFORMATION
  Report Type: 
  Country: None (occurrence: None)
  Receive Date: 20110316
  Receipt Date: 20110314
  Transmission Date: 20110831
  Serious: Yes (Other)
  Sender: FDA-Public Use
  Company Number: ES-MERCK-1103ESP00025

PATIENT
  Age: 76 Year
  Sex: Female

DRUGS (4)
  1. ACENOCOUMAROL [Suspect]
     Indication: PULMONARY EMBOLISM
     Route: 048
     Dates: start: 20110104, end: 20110127
  2. SINEMET [Suspect]
     Indication: PARKINSON'S DISEASE
     Route: 065
     Dates: start: 20061222
  3. ENTACAPONE [Suspect]
     Indication: PARKINSON'S DISEASE
     Route: 048
     Dates: start: 20070704
  4. BENSERAZIDE HYDROCHLORIDE AND LEVODOPA [Suspect]
     Indication: PARKINSON'S DISEASE
     Route: 065
     Dates: start: 20061222

REACTIONS (3)
  - PARKINSON'S DISEASE [None]
  - CONDITION AGGRAVATED [None]
  - DRUG INTERACTION [None]
